FAERS Safety Report 24741153 (Version 7)
Quarter: 2025Q1

REPORT INFORMATION
  Report Type: Spontaneous
  Country: US (occurrence: US)
  Receive Date: 20241217
  Receipt Date: 20250224
  Transmission Date: 20250409
  Serious: Yes (Hospitalization)
  Sender: KARYOPHARM THERAPEUTICS
  Company Number: US-KARYOPHARM-2024KPT001885

PATIENT

DRUGS (18)
  1. XPOVIO [Suspect]
     Active Substance: SELINEXOR
     Indication: Plasma cell myeloma
     Dosage: 60 MG, WEEKLY
     Route: 048
     Dates: start: 20241205
  2. POMALYST [Concomitant]
     Active Substance: POMALIDOMIDE
     Dosage: 4 MG, QD FOR 21 DAYS AND THEN 7 DAYS OFF
     Route: 048
  3. HUMALOG [Concomitant]
     Active Substance: INSULIN LISPRO
  4. ACYCLOVIR [Concomitant]
     Active Substance: ACYCLOVIR
  5. ADMELOG [Concomitant]
     Active Substance: INSULIN LISPRO
  6. DILTIAZEM [Concomitant]
     Active Substance: DILTIAZEM
  7. ELIQUIS [Concomitant]
     Active Substance: APIXABAN
  8. LASIX [Concomitant]
     Active Substance: FUROSEMIDE
  9. GABAPENTIN [Concomitant]
     Active Substance: GABAPENTIN
  10. INSULIN LISPRO [Concomitant]
     Active Substance: INSULIN LISPRO
  11. LEVEMIR [Concomitant]
     Active Substance: INSULIN DETEMIR
  12. MELOXICAM [Concomitant]
     Active Substance: MELOXICAM
  13. NOVOLOG [Concomitant]
     Active Substance: INSULIN ASPART
  14. OXYCODONE [Concomitant]
     Active Substance: OXYCODONE
  15. ZOFRAN [Concomitant]
     Active Substance: ONDANSETRON HYDROCHLORIDE
  16. OMEPRAZOLE [Concomitant]
     Active Substance: OMEPRAZOLE
  17. SEMGLEE (INSULIN GLARGINE) [Concomitant]
     Active Substance: INSULIN GLARGINE
  18. ENALAPRILAT [Concomitant]
     Active Substance: ENALAPRILAT

REACTIONS (5)
  - Pneumonia [Unknown]
  - Abdominal distension [Not Recovered/Not Resolved]
  - Fatigue [Unknown]
  - Asthenia [Unknown]
  - Dyspnoea [Unknown]

NARRATIVE: CASE EVENT DATE: 20241201
